FAERS Safety Report 9549994 (Version 1)
Quarter: 2013Q3

REPORT INFORMATION
  Report Type: Spontaneous
  Country: US (occurrence: US)
  Receive Date: 20130924
  Receipt Date: 20130924
  Transmission Date: 20140515
  Serious: Yes (Life-Threatening)
  Sender: FDA-Public Use
  Company Number: US-GLAXOSMITHKLINE-A1042099A

PATIENT
  Sex: Male

DRUGS (8)
  1. MEKINIST [Suspect]
     Indication: METASTATIC MALIGNANT MELANOMA
     Dosage: 2MG PER DAY
     Route: 048
     Dates: start: 201307
  2. LIPITOR [Concomitant]
  3. OMEPRAZOLE [Concomitant]
  4. NIASPAN [Concomitant]
  5. LISINOPRIL [Concomitant]
  6. NITROGLYCERIN [Concomitant]
  7. LIDODERM [Concomitant]
  8. LAXATIVE [Concomitant]

REACTIONS (7)
  - Vision blurred [Not Recovered/Not Resolved]
  - Fatigue [Not Recovered/Not Resolved]
  - Anaemia [Not Recovered/Not Resolved]
  - Rash pruritic [Not Recovered/Not Resolved]
  - Purpura [Not Recovered/Not Resolved]
  - Constipation [Not Recovered/Not Resolved]
  - Abdominal distension [Not Recovered/Not Resolved]
